FAERS Safety Report 7884419-2 (Version None)
Quarter: 2011Q4

REPORT INFORMATION
  Report Type: 
  Country: None (occurrence: None)
  Receive Date: 20111102
  Receipt Date: 20110818
  Transmission Date: 20120403
  Serious: No
  Sender: FDA-Public Use
  Company Number: US-ASTRAZENECA-2011SE43107

PATIENT
  Age: 62 Year
  Sex: Male

DRUGS (5)
  1. NEURONTIN [Concomitant]
  2. LEVOXYL [Concomitant]
  3. VANDETANIB [Suspect]
     Indication: THYROID CANCER
     Route: 048
     Dates: start: 20110705
  4. LOPERAMIDE HCL [Concomitant]
  5. DIOVAN [Concomitant]

REACTIONS (5)
  - COUGH [None]
  - BLOOD PRESSURE INCREASED [None]
  - HYPOAESTHESIA [None]
  - SKIN EXFOLIATION [None]
  - WEIGHT DECREASED [None]
